FAERS Safety Report 14082755 (Version 1)
Quarter: 2017Q4

REPORT INFORMATION
  Report Type: Spontaneous
  Country: FR (occurrence: FR)
  Receive Date: 20171013
  Receipt Date: 20171013
  Transmission Date: 20180321
  Serious: Yes (Other)
  Sender: FDA-Public Use
  Company Number: FR-SA-2017SA167710

PATIENT
  Age: 45 Year
  Sex: Male

DRUGS (1)
  1. AUBAGIO [Suspect]
     Active Substance: TERIFLUNOMIDE
     Indication: MULTIPLE SCLEROSIS
     Route: 048
     Dates: start: 20160113, end: 20170725

REACTIONS (6)
  - Depressed mood [Unknown]
  - Urinary tract infection [Unknown]
  - Pollakiuria [Unknown]
  - Mood swings [Unknown]
  - Gastrointestinal disorder [Unknown]
  - Tooth abscess [Unknown]

NARRATIVE: CASE EVENT DATE: 2016
